FAERS Safety Report 9482228 (Version 2)
Quarter: 2013Q4

REPORT INFORMATION
  Report Type: Spontaneous
  Country: CA (occurrence: CA)
  Receive Date: 20130828
  Receipt Date: 20131028
  Transmission Date: 20140711
  Serious: Yes (Life-Threatening, Disabling, Other)
  Sender: FDA-Public Use
  Company Number: CA-JNJFOC-20130813422

PATIENT
  Age: 25 Year
  Sex: Male
  Weight: 67 kg

DRUGS (5)
  1. RISPERDAL CONSTA [Suspect]
     Indication: PRODUCT USED FOR UNKNOWN INDICATION
     Route: 030
     Dates: start: 2008
  2. RISPERDAL CONSTA [Suspect]
     Indication: PRODUCT USED FOR UNKNOWN INDICATION
     Route: 030
     Dates: start: 2004, end: 2008
  3. NIACIN [Concomitant]
     Indication: PRODUCT USED FOR UNKNOWN INDICATION
     Route: 065
     Dates: start: 20080229, end: 20080412
  4. ASCORBIC ACID [Concomitant]
     Indication: PRODUCT USED FOR UNKNOWN INDICATION
     Route: 065
     Dates: start: 20080229, end: 20080412
  5. VITAMIN B COMPLEX [Concomitant]
     Indication: PRODUCT USED FOR UNKNOWN INDICATION
     Route: 065
     Dates: start: 20080229, end: 20080412

REACTIONS (16)
  - Psychotic disorder [Unknown]
  - Convulsion [Unknown]
  - Rash [Unknown]
  - Akathisia [Unknown]
  - Hallucination [Unknown]
  - Tardive dyskinesia [Unknown]
  - Liver injury [Unknown]
  - Capillary disorder [Unknown]
  - Fatigue [Unknown]
  - Tinnitus [Unknown]
  - Migraine [Unknown]
  - Dyskinesia [Unknown]
  - Headache [Unknown]
  - Dysgeusia [Unknown]
  - Restlessness [Unknown]
  - Musculoskeletal disorder [Unknown]
